FAERS Safety Report 25176694 (Version 5)
Quarter: 2025Q4

REPORT INFORMATION
  Report Type: Spontaneous
  Country: JP (occurrence: JP)
  Receive Date: 20250409
  Receipt Date: 20251031
  Transmission Date: 20260118
  Serious: Yes (Other)
  Sender: PHARMACOSMOS A/S
  Company Number: JP-NEBO-685438

PATIENT
  Age: 50 Year
  Sex: Female
  Weight: 73.1 kg

DRUGS (4)
  1. FERRIC DERISOMALTOSE [Suspect]
     Active Substance: FERRIC DERISOMALTOSE
     Indication: Iron deficiency anaemia
     Dates: start: 20250110, end: 20250110
  2. FERRIC DERISOMALTOSE [Suspect]
     Active Substance: FERRIC DERISOMALTOSE
     Indication: Iron deficiency anaemia
     Dates: start: 20250110, end: 20250110
  3. FERRIC DERISOMALTOSE [Suspect]
     Active Substance: FERRIC DERISOMALTOSE
     Indication: Iron deficiency anaemia
     Dates: start: 20250110, end: 20250110
  4. RELUGOLIX [Concomitant]
     Active Substance: RELUGOLIX
     Dates: start: 20241229

REACTIONS (6)
  - Oculogyric crisis [Recovered/Resolved]
  - Pyrexia [Recovered/Resolved]
  - Procedural anxiety [Recovered/Resolved]
  - Hypertension [Recovered/Resolved]
  - Anaphylactic shock [Recovered/Resolved]
  - Seizure [Recovered/Resolved]

NARRATIVE: CASE EVENT DATE: 20250110
